FAERS Safety Report 4984582-7 (Version None)
Quarter: 2006Q2

REPORT INFORMATION
  Report Type: 
  Country: None (occurrence: None)
  Receive Date: 20060426
  Receipt Date: 20060426
  Transmission Date: 20061013
  Serious: Yes (Hospitalization)
  Sender: FDA-Public Use
  Company Number: None

PATIENT
  Age: 83 Year
  Sex: Male
  Weight: 198 kg

DRUGS (1)
  1. GLYBURIDE [Suspect]
     Indication: DIABETES MELLITUS
     Dosage: 10 MG BID
     Dates: start: 20050713, end: 20060113

REACTIONS (2)
  - HYPOGLYCAEMIA [None]
  - SYNCOPE [None]
